FAERS Safety Report 9818260 (Version 1)
Quarter: 2013Q4

REPORT INFORMATION
  Report Type: Spontaneous
  Country: US (occurrence: None)
  Receive Date: 20131223
  Receipt Date: 20131223
  Transmission Date: 20140711
  Serious: Yes (Other)
  Sender: FDA-Public Use
  Company Number: 220065

PATIENT
  Age: 58 Year
  Sex: Female

DRUGS (3)
  1. PICATO GEL [Suspect]
     Indication: ACTINIC KERATOSIS
     Route: 023
     Dates: start: 20121228, end: 20121230
  2. PICATO GEL [Suspect]
     Indication: PRECANCEROUS CELLS PRESENT
     Route: 023
     Dates: start: 20121228, end: 20121230
  3. EVISTA (RALOXIFENE) [Concomitant]

REACTIONS (5)
  - Application site swelling [None]
  - Application site erythema [None]
  - Eyelid oedema [None]
  - Off label use [None]
  - Drug administration error [None]
